FAERS Safety Report 14848272 (Version 1)
Quarter: 2018Q2

REPORT INFORMATION
  Report Type: Spontaneous
  Country: JP (occurrence: JP)
  Receive Date: 20180504
  Receipt Date: 20180504
  Transmission Date: 20180711
  Serious: Yes (Life-Threatening)
  Sender: FDA-Public Use
  Company Number: JP-LANNETT COMPANY, INC.-JP-2018LAN000667

PATIENT
  Age: 62 Year
  Sex: Female

DRUGS (2)
  1. FLUPHENAZINE HYDROCHLORIDE (10MG) [Suspect]
     Active Substance: FLUPHENAZINE HYDROCHLORIDE
     Dosage: 25 MG, EVERY 2 WEEKS
     Route: 030
  2. FLUPHENAZINE HYDROCHLORIDE (10MG) [Suspect]
     Active Substance: FLUPHENAZINE HYDROCHLORIDE
     Indication: SCHIZOPHRENIA
     Dosage: 12.5 MG, UNK
     Route: 030

REACTIONS (4)
  - Pneumonia aspiration [Recovered/Resolved]
  - Atelectasis [Recovered/Resolved]
  - Salivary hypersecretion [Recovered/Resolved]
  - Extrapyramidal disorder [Recovered/Resolved]
